FAERS Safety Report 6143706-9 (Version None)
Quarter: 2009Q2

REPORT INFORMATION
  Report Type: 
  Country: None (occurrence: None)
  Receive Date: 20090403
  Receipt Date: 20090326
  Transmission Date: 20091009
  Serious: Yes (Other)
  Sender: FDA-Public Use
  Company Number: US-JNJCH-2009008634

PATIENT
  Age: 73 Year
  Sex: Female

DRUGS (1)
  1. ARTHRITIS FORMULA BENGAY [Suspect]
     Indication: ARTHRITIS
     Dosage: TEXT:ENOUGH TO COVER LEGS 3-4 TIMES DAILY
     Route: 061

REACTIONS (1)
  - HYPERTENSION [None]
